FAERS Safety Report 22221766 (Version 1)
Quarter: 2023Q2

REPORT INFORMATION
  Report Type: Spontaneous
  Country: US (occurrence: US)
  Receive Date: 20230418
  Receipt Date: 20230418
  Transmission Date: 20230721
  Serious: Yes (Other)
  Sender: FDA-Public Use
  Company Number: US-UROGEN PHARMA LTD.-2023-UGN-000027

PATIENT

DRUGS (12)
  1. JELMYTO [Suspect]
     Active Substance: MITOMYCIN
     Indication: Transitional cell cancer of the renal pelvis and ureter
     Dosage: ONE TIME PER WEEK (INSTILLATION)
     Dates: start: 20220317, end: 20220317
  2. JELMYTO [Suspect]
     Active Substance: MITOMYCIN
     Dosage: ONE TIME PER WEEK (INSTILLATION)
     Dates: start: 20220324, end: 20220324
  3. JELMYTO [Suspect]
     Active Substance: MITOMYCIN
     Dosage: ONE TIME PER WEEK (INSTILLATION)
     Dates: start: 20220331, end: 20220331
  4. JELMYTO [Suspect]
     Active Substance: MITOMYCIN
     Dosage: ONE TIME PER WEEK (INSTILLATION)
     Dates: start: 20220407, end: 20220407
  5. JELMYTO [Suspect]
     Active Substance: MITOMYCIN
     Dosage: ONE TIME PER WEEK (INSTILLATION)
     Dates: start: 20220414, end: 20220414
  6. JELMYTO [Suspect]
     Active Substance: MITOMYCIN
     Dosage: ONE TIME PER WEEK (INSTILLATION)
     Dates: start: 20220421, end: 20220421
  7. JELMYTO [Suspect]
     Active Substance: MITOMYCIN
     Dosage: ONE TIME PER MONTH (INSTILLATION)
     Dates: start: 20220901, end: 20220901
  8. JELMYTO [Suspect]
     Active Substance: MITOMYCIN
     Dosage: ONE TIME PER MONTH (INSTILLATION)
     Dates: start: 20221003, end: 20221003
  9. JELMYTO [Suspect]
     Active Substance: MITOMYCIN
     Dosage: ONE TIME PER MONTH (INSTILLATION)
     Dates: start: 20221103, end: 20221103
  10. JELMYTO [Suspect]
     Active Substance: MITOMYCIN
     Dosage: ONE TIME PER MONTH (INSTILLATION)
     Dates: start: 20221201, end: 20221201
  11. JELMYTO [Suspect]
     Active Substance: MITOMYCIN
     Dosage: ONE TIME PER MONTH (INSTILLATION)
     Dates: start: 20230105, end: 20230105
  12. JELMYTO [Suspect]
     Active Substance: MITOMYCIN
     Dosage: ONE TIME PER MONTH (INSTILLATION)
     Dates: start: 20230202, end: 20230202

REACTIONS (1)
  - Ureteric stenosis [Recovered/Resolved]

NARRATIVE: CASE EVENT DATE: 20230202
